FAERS Safety Report 24700820 (Version 1)
Quarter: 2024Q4

REPORT INFORMATION
  Report Type: Spontaneous
  Country: CA (occurrence: CA)
  Receive Date: 20241205
  Receipt Date: 20241205
  Transmission Date: 20250115
  Serious: Yes (Life-Threatening)
  Sender: ROCHE
  Company Number: CA-ROCHE-10000146620

PATIENT
  Age: 1 Year
  Sex: Male
  Weight: 9 kg

DRUGS (17)
  1. ACTEMRA [Suspect]
     Active Substance: TOCILIZUMAB
     Indication: Product used for unknown indication
     Route: 042
  2. ACTEMRA [Suspect]
     Active Substance: TOCILIZUMAB
     Route: 042
  3. PHENOBARBITAL [Suspect]
     Active Substance: PHENOBARBITAL
     Indication: Product used for unknown indication
     Route: 042
  4. SULFAMETHOXAZOLE\TRIMETHOPRIM [Suspect]
     Active Substance: SULFAMETHOXAZOLE\TRIMETHOPRIM
     Indication: Product used for unknown indication
     Route: 048
  5. ACETAMINOPHEN [Concomitant]
     Active Substance: ACETAMINOPHEN
  6. BETAMETHASONE [Concomitant]
     Active Substance: BETAMETHASONE
  7. DEXMEDETOMIDINE [Concomitant]
     Active Substance: DEXMEDETOMIDINE
  8. FAMOTIDINE [Concomitant]
     Active Substance: FAMOTIDINE
  9. FENTANYL [Concomitant]
     Active Substance: FENTANYL
  10. FUROSEMIDE [Concomitant]
     Active Substance: FUROSEMIDE
  11. KETAMINE [Concomitant]
     Active Substance: KETAMINE
  12. MIDAZOLAM [Concomitant]
     Active Substance: MIDAZOLAM
  13. MORPHINE SULFATE [Concomitant]
     Active Substance: MORPHINE SULFATE
  14. MYCOPHENOLATE MOFETIL [Concomitant]
     Active Substance: MYCOPHENOLATE MOFETIL
  15. PREDNISONE [Concomitant]
     Active Substance: PREDNISONE
  16. ROCURONIUM [Concomitant]
     Active Substance: ROCURONIUM BROMIDE
  17. SPIRONOLACTONE [Concomitant]
     Active Substance: SPIRONOLACTONE

REACTIONS (4)
  - Anaphylactic reaction [Unknown]
  - Asthenia [Unknown]
  - Dyspnoea [Unknown]
  - Rash papular [Unknown]
